FAERS Safety Report 7374780-X (Version None)
Quarter: 2011Q1

REPORT INFORMATION
  Report Type: 
  Country: None (occurrence: None)
  Receive Date: 20110325
  Receipt Date: 20101122
  Transmission Date: 20110831
  Serious: No
  Sender: FDA-Public Use
  Company Number: US-MYLANLABS-2010S1020388

PATIENT
  Age: 63 Year
  Sex: Male
  Weight: 86.18 kg

DRUGS (22)
  1. VERAPAMIL EXTENDED-RELEASE [Concomitant]
  2. BUSPIRONE HCL [Concomitant]
  3. CLONAZEPAM [Concomitant]
  4. LASIX [Concomitant]
  5. LOVASTATIN [Concomitant]
  6. ALBUTEROL [Concomitant]
  7. BENAZEPRIL HYDROCHLORIDE [Concomitant]
  8. GLYBURIDE [Concomitant]
  9. FINASTERIDE [Concomitant]
  10. PAROXETINE HCL [Concomitant]
  11. JANUVIA [Concomitant]
  12. ASPIRIN [Concomitant]
  13. VOLTAREN [Concomitant]
  14. FENTANYL-100 [Suspect]
     Indication: PAIN
     Dosage: CHANGED Q72H
     Route: 062
     Dates: start: 20070101
  15. LANTUS /01696801/ [Concomitant]
  16. FISH OIL [Concomitant]
  17. RANITIDINE [Concomitant]
  18. TRAMADOL HCL [Concomitant]
  19. POTASSIUM CHLORIDE [Concomitant]
  20. DOXAZOSIN [Concomitant]
  21. TRIAMTERENE AND HYDROCHLOROTHIAZIDE [Concomitant]
     Dosage: 37.5/25MG
  22. FLOMAX /01280302/ [Concomitant]

REACTIONS (6)
  - PAIN [None]
  - DRUG WITHDRAWAL SYNDROME [None]
  - INFLUENZA LIKE ILLNESS [None]
  - DRUG INEFFECTIVE [None]
  - DRUG SCREEN NEGATIVE [None]
  - WRONG TECHNIQUE IN DRUG USAGE PROCESS [None]
